FAERS Safety Report 9294944 (Version 1)
Quarter: 2013Q1

REPORT INFORMATION
  Report Type: Spontaneous
  Country: US (occurrence: None)
  Receive Date: 20121214
  Receipt Date: 20121214
  Transmission Date: 20140127
  Serious: No
  Sender: FDA-Public Use
  Company Number: 1210USA005465

PATIENT
  Age: 58 Year
  Sex: Male

DRUGS (3)
  1. JANUVIA (SITAGLIPTIN PHOSPHATE) FILM-COATED TABLET [Suspect]
     Route: 048
  2. PRINIVIL (LISINOPRIL) TABLET, 40MG [Suspect]
     Route: 048
  3. CATAPRES (CLONIDINE HYDROCHLORIDE) [Concomitant]

REACTIONS (2)
  - Renal failure acute [None]
  - Drug interaction [None]
